FAERS Safety Report 4918172-9 (Version None)
Quarter: 2006Q1

REPORT INFORMATION
  Report Type: 
  Country: None (occurrence: None)
  Receive Date: 20060215
  Receipt Date: 20060202
  Transmission Date: 20060701
  Serious: Yes (Disabling, Other)
  Sender: FDA-Public Use
  Company Number: GXKR2006DK00776

PATIENT
  Age: 40 Year
  Sex: Male
  Weight: 95 kg

DRUGS (2)
  1. METOPROLOL SUCCINATE [Suspect]
     Indication: BLOOD PRESSURE
     Dosage: ORAL
     Route: 048
     Dates: start: 20051114, end: 20051118
  2. VERALOC (VERAPAMIL HYDROCHLORIDE) 80MG [Suspect]
     Indication: CLUSTER HEADACHE
     Dosage: 80 MG, QID2SDO
     Dates: start: 20050601, end: 20051125

REACTIONS (7)
  - CLUSTER HEADACHE [None]
  - CONDITION AGGRAVATED [None]
  - HYPERTENSION [None]
  - MALAISE [None]
  - NAUSEA [None]
  - PALPITATIONS [None]
  - VOMITING [None]
